FAERS Safety Report 6556487-1 (Version None)
Quarter: 2010Q1

REPORT INFORMATION
  Report Type: 
  Country: None (occurrence: None)
  Receive Date: 20100125
  Receipt Date: 20100108
  Transmission Date: 20100710
  Serious: Yes (Death, Life-Threatening)
  Sender: FDA-Public Use
  Company Number: 2010000159

PATIENT
  Age: 41 Year
  Sex: Male

DRUGS (14)
  1. ERLOTINIB HYDROCHLORIDE [Suspect]
     Indication: NON-SMALL CELL LUNG CANCER
     Dosage: (QD), ORAL
     Route: 048
     Dates: start: 20091128, end: 20091227
  2. DOCETAXEL [Suspect]
     Indication: NON-SMALL CELL LUNG CANCER
     Dosage: (Q3W), INTRAVENOUS
     Route: 042
     Dates: start: 20091127, end: 20091218
  3. PRIMERAN [Concomitant]
  4. MOVICOLON       (NULYTELY) [Concomitant]
  5. ZOFIL [Concomitant]
  6. XYZAL [Concomitant]
  7. METOPROLOL (METOPROLOL) [Concomitant]
  8. NYSTATIN [Concomitant]
  9. DURATEARS (DURATEARS) [Concomitant]
  10. KETOKONAZOL (KETOCONAZOLE) [Concomitant]
  11. METRONIDAZOL [Concomitant]
  12. VASELINE NOS [Concomitant]
  13. BACTROBAN [Concomitant]
  14. ONDANSETRON [Concomitant]

REACTIONS (5)
  - DEHYDRATION [None]
  - DIARRHOEA [None]
  - SEPSIS [None]
  - SPUTUM CULTURE POSITIVE [None]
  - STAPHYLOCOCCAL INFECTION [None]
